FAERS Safety Report 7771654-7 (Version None)
Quarter: 2011Q3

REPORT INFORMATION
  Report Type: 
  Country: None (occurrence: None)
  Receive Date: 20110922
  Receipt Date: 20110328
  Transmission Date: 20111222
  Serious: No
  Sender: FDA-Public Use
  Company Number: US-ASTRAZENECA-2008UW03604

PATIENT
  Sex: Female

DRUGS (7)
  1. SEROQUEL [Suspect]
     Route: 048
     Dates: start: 20030101
  2. ZETIA [Concomitant]
     Dates: start: 20060814
  3. ZYPREXA [Concomitant]
     Dates: start: 20060101
  4. WELLBUTRIN XL [Concomitant]
     Dates: start: 20060101
  5. NIASPAN [Concomitant]
     Dates: start: 20060814
  6. WELLBUTRIN XL [Concomitant]
     Dates: start: 20060101
  7. CIPROFLOXACIN [Concomitant]
     Dates: start: 20050719

REACTIONS (2)
  - TYPE 2 DIABETES MELLITUS [None]
  - VISION BLURRED [None]
